FAERS Safety Report 24179914 (Version 1)
Quarter: 2024Q3

REPORT INFORMATION
  Report Type: Spontaneous
  Country: US (occurrence: None)
  Receive Date: 20240805
  Receipt Date: 20240805
  Transmission Date: 20241017
  Serious: No
  Sender: Public
  Company Number: None

PATIENT
  Age: 30 Year
  Sex: Male

DRUGS (1)
  1. SUBLOCADE [Suspect]
     Active Substance: BUPRENORPHINE
     Indication: Drug dependence
     Dosage: FREQUENCY : MONTHLY;?
     Route: 030

REACTIONS (2)
  - Refusal of treatment by patient [None]
  - Adverse drug reaction [None]

NARRATIVE: CASE EVENT DATE: 20240717
